FAERS Safety Report 4630183-X (Version None)
Quarter: 2005Q2

REPORT INFORMATION
  Report Type: 
  Country: None (occurrence: None)
  Receive Date: 20050408
  Receipt Date: 20050314
  Transmission Date: 20051028
  Serious: Yes (Other)
  Sender: FDA-Public Use
  Company Number: PHNU2005DE01350

PATIENT

DRUGS (2)
  1. PROVAS [Suspect]
     Dosage: UNK, UNK
     Route: 048
  2. ACETYL SALICYLIC ACID USP BAT [Concomitant]
     Dosage: 'HIGH DOSE'
     Route: 048

REACTIONS (1)
  - EPISTAXIS [None]
